FAERS Safety Report 16351656 (Version 1)
Quarter: 2019Q2

REPORT INFORMATION
  Report Type: Spontaneous
  Country: FR (occurrence: FR)
  Receive Date: 20190524
  Receipt Date: 20190524
  Transmission Date: 20190711
  Serious: Yes (Other)
  Sender: FDA-Public Use
  Company Number: FR-ASTRAZENECA-2019SE74757

PATIENT
  Age: 70 Year
  Sex: Female

DRUGS (7)
  1. OSIMERTINIB. [Suspect]
     Active Substance: OSIMERTINIB
     Indication: LUNG ADENOCARCINOMA STAGE IV
     Route: 048
     Dates: start: 201803, end: 201804
  2. OSIMERTINIB. [Suspect]
     Active Substance: OSIMERTINIB
     Indication: LUNG ADENOCARCINOMA STAGE IV
     Route: 048
     Dates: start: 201801, end: 201802
  3. TRAMETINIB [Concomitant]
     Active Substance: TRAMETINIB
     Indication: LUNG ADENOCARCINOMA STAGE IV
     Dosage: 2 MG ONCE DAILY WITH DABRAFETINIB
     Route: 065
     Dates: start: 201711, end: 201801
  4. DABRAFETINIB [Concomitant]
     Indication: LUNG ADENOCARCINOMA STAGE IV
     Dosage: 150 MG TWICE DAILY WITH TRAMETINIB
     Route: 065
     Dates: start: 201711, end: 201801
  5. OSIMERTINIB. [Suspect]
     Active Substance: OSIMERTINIB
     Indication: LUNG ADENOCARCINOMA STAGE IV
     Route: 048
     Dates: start: 201603, end: 201708
  6. TRAMETINIB [Concomitant]
     Active Substance: TRAMETINIB
     Indication: LUNG ADENOCARCINOMA STAGE IV
     Dosage: 2 MG ONCE DAILY WITH DABRAFETINIB
     Route: 065
     Dates: start: 201802
  7. DABRAFETINIB [Concomitant]
     Indication: LUNG ADENOCARCINOMA STAGE IV
     Dosage: 150 MG TWICE DAILY WITH TRAMETINIB
     Route: 065
     Dates: start: 201802

REACTIONS (3)
  - Drug resistance [Unknown]
  - BRAF V600E mutation positive [Unknown]
  - Malignant neoplasm progression [Unknown]
